FAERS Safety Report 18537865 (Version 2)
Quarter: 2020Q4

REPORT INFORMATION
  Report Type: Spontaneous
  Country: GB (occurrence: GB)
  Receive Date: 20201124
  Receipt Date: 20201208
  Transmission Date: 20210114
  Serious: Yes (Other)
  Sender: FDA-Public Use
  Company Number: GB-009507513-2011GBR010546

PATIENT
  Age: 63 Year
  Sex: Female

DRUGS (4)
  1. SINEMET CR [Suspect]
     Active Substance: CARBIDOPA\LEVODOPA
     Dosage: AT NIGHT
     Route: 048
  2. SINEMET [Suspect]
     Active Substance: CARBIDOPA\LEVODOPA
     Indication: PARKINSON^S DISEASE
     Dosage: STRENGTH/PRESENTATION: 12.5 MILLIGRAM (MG)/50MG TABLETS
     Route: 048
  3. SINEMET [Suspect]
     Active Substance: CARBIDOPA\LEVODOPA
     Dosage: STRENGTH/PRESENTATION: 12.5 MILLIGRAM (MG)/50MG TABLETS
     Route: 048
  4. SINEMET [Suspect]
     Active Substance: CARBIDOPA\LEVODOPA
     Dosage: STRENGTH/PRESENTATION: 12.5 MILLIGRAM (MG)/50MG TABLETS
     Route: 048

REACTIONS (1)
  - Parkinson^s disease [Not Recovered/Not Resolved]

NARRATIVE: CASE EVENT DATE: 202009
